FAERS Safety Report 6203954-6 (Version None)
Quarter: 2009Q2

REPORT INFORMATION
  Report Type: 
  Country: None (occurrence: None)
  Receive Date: 20090527
  Receipt Date: 20090519
  Transmission Date: 20091009
  Serious: Yes (Hospitalization, Other)
  Sender: FDA-Public Use
  Company Number: B0561611A

PATIENT
  Age: 78 Year
  Sex: Female

DRUGS (4)
  1. REQUIP XL [Suspect]
     Indication: PARKINSON'S DISEASE
     Dosage: 6MG THREE TIMES PER DAY
     Route: 048
  2. SINEMET [Concomitant]
  3. RIVASTIGMINE TARTRATE [Concomitant]
  4. METHOTREXATE [Concomitant]

REACTIONS (5)
  - CONFUSIONAL STATE [None]
  - DRUG PRESCRIBING ERROR [None]
  - DYSKINESIA [None]
  - EAR INFECTION [None]
  - HIP FRACTURE [None]
